FAERS Safety Report 25856490 (Version 1)
Quarter: 2025Q3

REPORT INFORMATION
  Report Type: Spontaneous
  Country: US (occurrence: US)
  Receive Date: 20250929
  Receipt Date: 20250929
  Transmission Date: 20251020
  Serious: No
  Sender: BIOGEN
  Company Number: US-BIOGEN-2023BI01242168

PATIENT
  Sex: Male

DRUGS (4)
  1. SKYCLARYS [Suspect]
     Active Substance: OMAVELOXOLONE
     Indication: Friedreich^s ataxia
     Dosage: 150 MILLIGRAM, QD
     Route: 050
     Dates: start: 20230724
  2. SKYCLARYS [Suspect]
     Active Substance: OMAVELOXOLONE
     Dosage: 50 MILLIGRAM, BID
     Route: 050
  3. SKYCLARYS [Suspect]
     Active Substance: OMAVELOXOLONE
     Dosage: 150 MILLIGRAM, QD
     Route: 050
     Dates: start: 20230724
  4. SKYCLARYS [Suspect]
     Active Substance: OMAVELOXOLONE
     Dosage: 150 MILLIGRAM, QD, BY MOUTH ONCE DAILY
     Route: 050
     Dates: start: 20230724

REACTIONS (7)
  - Nervousness [Unknown]
  - Gait disturbance [Unknown]
  - Somnolence [Unknown]
  - Fatigue [Unknown]
  - Muscle spasms [Unknown]
  - Blood cholesterol increased [Unknown]
  - Underdose [Unknown]

NARRATIVE: CASE EVENT DATE: 20230101
